FAERS Safety Report 13968370 (Version 1)
Quarter: 2017Q3

REPORT INFORMATION
  Report Type: Spontaneous
  Country: US (occurrence: US)
  Receive Date: 20170914
  Receipt Date: 20170914
  Transmission Date: 20171128
  Serious: No
  Sender: FDA-Public Use
  Company Number: US-BAYER-2017-175332

PATIENT
  Age: 83 Year
  Sex: Male
  Weight: 103 kg

DRUGS (5)
  1. SUBOXONE [Concomitant]
     Active Substance: BUPRENORPHINE HYDROCHLORIDE\NALOXONE HYDROCHLORIDE
     Dosage: UNK
  2. GLUCOSE [Concomitant]
     Active Substance: DEXTROSE
     Dosage: 20 MG, UNK
  3. ANTICOAGULANT SODIUM CITRATE [Concomitant]
     Active Substance: SODIUM CITRATE
  4. MIRALAX [Suspect]
     Active Substance: POLYETHYLENE GLYCOL 3350
     Indication: GASTROINTESTINAL DISORDER
     Dosage: 0.5 DF, OW
     Route: 048
     Dates: start: 201702
  5. INSULIN [Concomitant]
     Active Substance: INSULIN NOS
     Dosage: 20 DF, UNK

REACTIONS (5)
  - Inappropriate prescribing [Unknown]
  - Frequent bowel movements [Unknown]
  - Faeces soft [Unknown]
  - Product packaging issue [None]
  - Product use issue [Unknown]
